FAERS Safety Report 7389224-1 (Version None)
Quarter: 2011Q2

REPORT INFORMATION
  Report Type: 
  Country: None (occurrence: None)
  Receive Date: 20110401
  Receipt Date: 20110324
  Transmission Date: 20111010
  Serious: Yes (Hospitalization)
  Sender: FDA-Public Use
  Company Number: FR-CEPHALON-2011001462

PATIENT
  Sex: Male
  Weight: 95 kg

DRUGS (10)
  1. PLAVIX [Concomitant]
     Dates: end: 20110311
  2. BENDAMUSTINE HCL [Suspect]
     Route: 042
     Dates: start: 20110316
  3. PARIET [Concomitant]
  4. BENDAMUSTINE HCL [Suspect]
     Route: 042
     Dates: start: 20110311, end: 20110311
  5. BACTRIM [Concomitant]
     Dates: start: 20110311
  6. CORTANCYL [Concomitant]
     Dates: start: 20110303, end: 20110318
  7. GARDENAL [Concomitant]
  8. ZELITREX [Concomitant]
     Dates: start: 20110311
  9. NICERGOLINE [Concomitant]
  10. RITUXIMAB [Suspect]
     Dates: start: 20110311

REACTIONS (4)
  - HYPOTENSION [None]
  - RENAL FAILURE ACUTE [None]
  - HYPOTHERMIA [None]
  - TUMOUR LYSIS SYNDROME [None]
